FAERS Safety Report 5428843-6 (Version None)
Quarter: 2007Q3

REPORT INFORMATION
  Report Type: 
  Country: None (occurrence: None)
  Receive Date: 20070829
  Receipt Date: 20061221
  Transmission Date: 20080115
  Serious: No
  Sender: FDA-Public Use
  Company Number: A0632467A

PATIENT
  Age: 36 Year
  Sex: Male

DRUGS (1)
  1. ZOVIRAX [Suspect]
     Indication: HERPES SIMPLEX
     Dosage: 400MG TWICE PER DAY
     Route: 048
     Dates: start: 20061001

REACTIONS (3)
  - ORAL HERPES [None]
  - ORAL PAIN [None]
  - STOMATITIS [None]
